FAERS Safety Report 12551146 (Version 1)
Quarter: 2016Q3

REPORT INFORMATION
  Report Type: Report from Study
  Country: BR (occurrence: BR)
  Receive Date: 20160713
  Receipt Date: 20160713
  Transmission Date: 20161109
  Serious: Yes (Hospitalization, Disabling, Other)
  Sender: FDA-Public Use
  Company Number: BR-ROCHE-1489029

PATIENT
  Age: 34 Year
  Sex: Female
  Weight: 60 kg

DRUGS (6)
  1. XOLAIR [Suspect]
     Active Substance: OMALIZUMAB
     Indication: ASTHMA
     Route: 058
     Dates: start: 20070102
  2. ALGESTONE ACETOPHENIDE/ESTRADIOL ENANTATE [Concomitant]
     Indication: CONTRACEPTION
     Dosage: DRUG REPORTED AS UNO-CICLO
     Route: 065
     Dates: start: 2006
  3. XOLAIR [Suspect]
     Active Substance: OMALIZUMAB
     Route: 058
     Dates: start: 20150822
  4. ALENIA (BRAZIL) [Concomitant]
     Active Substance: BUDESONIDE\FORMOTEROL FUMARATE
     Indication: ASTHMA
     Dosage: MORE THAN 10 YEARS AGO, TID
     Route: 048
     Dates: start: 2004
  5. XOLAIR [Suspect]
     Active Substance: OMALIZUMAB
     Dosage: QMO
     Route: 058
     Dates: start: 200709
  6. OXYGEN. [Concomitant]
     Active Substance: OXYGEN

REACTIONS (15)
  - High risk pregnancy [Recovered/Resolved]
  - Maternal exposure during pregnancy [Unknown]
  - Respiratory arrest [Not Recovered/Not Resolved]
  - Asthenia [Recovering/Resolving]
  - Haemorrhage [Recovered/Resolved]
  - Dyspnoea [Recovering/Resolving]
  - Dysstasia [Recovering/Resolving]
  - Asthmatic crisis [Recovered/Resolved]
  - Complication of pregnancy [Recovered/Resolved]
  - Weight increased [Recovered/Resolved]
  - Pneumonia [Recovered/Resolved]
  - Dysstasia [Recovered/Resolved]
  - Gait disturbance [Not Recovered/Not Resolved]
  - Malaise [Recovering/Resolving]
  - Asthma [Not Recovered/Not Resolved]

NARRATIVE: CASE EVENT DATE: 201510
